FAERS Safety Report 13050998 (Version 4)
Quarter: 2017Q1

REPORT INFORMATION
  Report Type: Spontaneous
  Country: US (occurrence: US)
  Receive Date: 20161221
  Receipt Date: 20170331
  Transmission Date: 20170428
  Serious: No
  Sender: FDA-Public Use
  Company Number: US-PFIZER INC-2016581326

PATIENT
  Age: 12 Year
  Sex: Male
  Weight: 38 kg

DRUGS (5)
  1. GENOTROPIN [Suspect]
     Active Substance: SOMATROPIN
     Indication: BODY HEIGHT BELOW NORMAL
     Dosage: 1.6 MG, 1X/DAY (ONCE DAILY AT BEDTIME)
     Route: 058
     Dates: start: 201610
  2. GENOTROPIN [Suspect]
     Active Substance: SOMATROPIN
     Indication: PRECOCIOUS PUBERTY
     Dosage: 1X/DAY (1.6 )
     Dates: start: 20161013
  3. LETROZOLE. [Concomitant]
     Active Substance: LETROZOLE
     Dosage: UNK
     Dates: start: 201505
  4. SUPPRELIN [Concomitant]
     Active Substance: HISTRELIN ACETATE
     Dosage: UNK
     Dates: start: 201008
  5. LORATADIN [Concomitant]
     Active Substance: LORATADINE
     Dosage: UNK
     Dates: start: 2008

REACTIONS (2)
  - Nasal congestion [Not Recovered/Not Resolved]
  - Injection site pain [Recovered/Resolved]

NARRATIVE: CASE EVENT DATE: 201611
